FAERS Safety Report 6793068-9 (Version None)
Quarter: 2010Q2

REPORT INFORMATION
  Report Type: 
  Country: None (occurrence: None)
  Receive Date: 20100624
  Receipt Date: 20090205
  Transmission Date: 20101027
  Serious: Yes (Other)
  Sender: FDA-Public Use
  Company Number: US-PFIZER INC-2008092896

PATIENT
  Sex: Female

DRUGS (14)
  1. GEODON [Suspect]
     Indication: MANIA
     Dosage: 100 MG, 1X/DAY
     Route: 048
     Dates: start: 20040101
  2. ALLEGRA [Suspect]
  3. ALL OTHER THERAPEUTIC PRODUCTS [Suspect]
  4. LAMICTAL [Concomitant]
  5. CLONAZEPAM [Concomitant]
  6. CLONAZEPAM [Concomitant]
     Route: 048
  7. LUNESTA [Concomitant]
  8. TRIAMCINOLONE ACETONIDE [Concomitant]
  9. VITAMIN D [Concomitant]
     Route: 048
  10. DICLOFENAC POTASSIUM [Concomitant]
     Route: 048
  11. VICODIN [Concomitant]
     Route: 048
  12. LAC-HYDRIN [Concomitant]
  13. VALTREX [Concomitant]
     Route: 048
  14. MIRENA [Concomitant]

REACTIONS (3)
  - GLUCOSE TOLERANCE IMPAIRED [None]
  - THROAT TIGHTNESS [None]
  - WEIGHT INCREASED [None]
